FAERS Safety Report 5922825-3 (Version None)
Quarter: 2008Q4

REPORT INFORMATION
  Report Type: 
  Country: None (occurrence: None)
  Receive Date: 20081017
  Receipt Date: 20081015
  Transmission Date: 20090506
  Serious: Yes (Life-Threatening)
  Sender: FDA-Public Use
  Company Number: GB-B.I. PHARMACEUTICALS,INC./RIDGEFIELD-2008-UK-01663UK

PATIENT
  Age: 84 Year
  Sex: Female

DRUGS (10)
  1. MOBIC [Suspect]
     Indication: ARTHRITIS
     Dosage: 7.5MG
     Route: 048
     Dates: start: 20080709
  2. MOBIC [Suspect]
     Dosage: 15MG
     Route: 048
  3. ASPIRIN [Concomitant]
  4. DOXAZOSIN MESYLATE [Concomitant]
  5. FUROSEMIDE [Concomitant]
  6. LANSOPRAZOLE [Concomitant]
  7. LISINOPRIL [Concomitant]
  8. ACETAMINOPHEN [Concomitant]
  9. TIMOLOL [Concomitant]
  10. XALATAN [Concomitant]

REACTIONS (1)
  - TRANSIENT ISCHAEMIC ATTACK [None]
